FAERS Safety Report 19469549 (Version 1)
Quarter: 2021Q2

REPORT INFORMATION
  Report Type: Spontaneous
  Country: JP (occurrence: JP)
  Receive Date: 20210629
  Receipt Date: 20210629
  Transmission Date: 20210717
  Serious: Yes (Death, Other)
  Sender: FDA-Public Use
  Company Number: NVSJ2021JP009785

PATIENT
  Age: 88 Year
  Sex: Male

DRUGS (1)
  1. ENTRESTO [Suspect]
     Active Substance: SACUBITRIL\VALSARTAN
     Indication: CARDIAC FAILURE CHRONIC
     Dosage: 100 MG, BID
     Route: 048

REACTIONS (5)
  - Condition aggravated [Unknown]
  - Cardiac failure [Fatal]
  - Concomitant disease aggravated [Unknown]
  - Melaena [Unknown]
  - Colon cancer [Unknown]
